FAERS Safety Report 13090652 (Version 1)
Quarter: 2017Q1

REPORT INFORMATION
  Report Type: Spontaneous
  Country: FR (occurrence: FR)
  Receive Date: 20170105
  Receipt Date: 20170105
  Transmission Date: 20170428
  Serious: Yes (Death, Congenital Anomaly)
  Sender: FDA-Public Use
  Company Number: FR-009507513-1612FRA013916

PATIENT
  Sex: Female

DRUGS (1)
  1. TEMODAL [Suspect]
     Active Substance: TEMOZOLOMIDE
     Dosage: UNK
     Route: 064
     Dates: end: 20150212

REACTIONS (4)
  - Foetal growth restriction [Not Recovered/Not Resolved]
  - Foetal death [Fatal]
  - Mosaicism [Unknown]
  - Placental infarction [Fatal]

NARRATIVE: CASE EVENT DATE: 20150805
